FAERS Safety Report 4412089-4 (Version None)
Quarter: 2004Q3

REPORT INFORMATION
  Report Type: 
  Country: None (occurrence: None)
  Receive Date: 20040730
  Receipt Date: 20040727
  Transmission Date: 20050211
  Serious: Yes (Hospitalization)
  Sender: FDA-Public Use
  Company Number: US-GLAXOSMITHKLINE-A0519894A

PATIENT
  Age: 34 Year
  Sex: Female

DRUGS (3)
  1. ADVAIR DISKUS 100/50 [Suspect]
     Indication: BRONCHITIS
     Dosage: 1PUFF TWICE PER DAY
     Route: 055
     Dates: start: 20030201, end: 20030701
  2. ANTIBIOTICS [Concomitant]
  3. BUSPAR [Concomitant]

REACTIONS (4)
  - CONVULSION [None]
  - DYSGEUSIA [None]
  - HEADACHE [None]
  - TINNITUS [None]
